FAERS Safety Report 11001202 (Version 1)
Quarter: 2015Q2

REPORT INFORMATION
  Report Type: Spontaneous
  Country: US (occurrence: US)
  Receive Date: 20150408
  Receipt Date: 20150408
  Transmission Date: 20150821
  Serious: No
  Sender: FDA-Public Use
  Company Number: US-SA-2014SA180524

PATIENT
  Age: 61 Year
  Sex: Female

DRUGS (2)
  1. FLUTICASONE PROPIONATE. [Concomitant]
     Active Substance: FLUTICASONE PROPIONATE
     Dosage: FORM: NASAL SPRAY
     Route: 045
  2. ALLEGRA [Suspect]
     Active Substance: FEXOFENADINE HYDROCHLORIDE
     Indication: EXTERNAL EAR DISORDER
     Route: 048

REACTIONS (1)
  - Somnolence [Unknown]
